FAERS Safety Report 7757401-3 (Version None)
Quarter: 2011Q3

REPORT INFORMATION
  Report Type: 
  Country: None (occurrence: None)
  Receive Date: 20110916
  Receipt Date: 20110908
  Transmission Date: 20111222
  Serious: Yes (Death, Hospitalization)
  Sender: FDA-Public Use
  Company Number: TW-ACTELION-A-CH2009-32510

PATIENT
  Sex: Female
  Weight: 53 kg

DRUGS (3)
  1. SILDENAFIL CITRATE [Concomitant]
     Dosage: UNK
     Dates: start: 20070701, end: 20110902
  2. TRACLEER [Suspect]
     Indication: PULMONARY ARTERIAL HYPERTENSION
     Dosage: 125 MG, BID
     Route: 048
     Dates: start: 20060201, end: 20110902
  3. TRACLEER [Suspect]
     Dosage: 62.5 MG, BID
     Route: 048
     Dates: start: 20040915, end: 20060131

REACTIONS (8)
  - DYSPNOEA EXERTIONAL [None]
  - BRAIN NATRIURETIC PEPTIDE INCREASED [None]
  - PERICARDIAL EFFUSION [None]
  - CARDIAC FAILURE [None]
  - EXERCISE TOLERANCE DECREASED [None]
  - PULMONARY ARTERIAL HYPERTENSION [None]
  - HAEMOPTYSIS [None]
  - DISEASE PROGRESSION [None]
